FAERS Safety Report 4683514-9 (Version None)
Quarter: 2005Q2

REPORT INFORMATION
  Report Type: 
  Country: None (occurrence: None)
  Receive Date: 20050606
  Receipt Date: 20050606
  Transmission Date: 20051028
  Serious: Yes (Other)
  Sender: FDA-Public Use
  Company Number: None

PATIENT
  Sex: Male
  Weight: 117.9352 kg

DRUGS (1)
  1. SEROQUEL [Suspect]
     Indication: BIPOLAR DISORDER
     Dosage: 200MG   4 TIMES A DAY   ORAL
     Route: 048
     Dates: start: 20020601, end: 20050330

REACTIONS (1)
  - DRUG WITHDRAWAL SYNDROME [None]
